FAERS Safety Report 7833894-8 (Version None)
Quarter: 2011Q4

REPORT INFORMATION
  Report Type: 
  Country: None (occurrence: None)
  Receive Date: 20111024
  Receipt Date: 20111019
  Transmission Date: 20120403
  Serious: Yes (Other)
  Sender: FDA-Public Use
  Company Number: US-PFIZER INC-2011252482

PATIENT
  Age: 62 Year
  Sex: Female

DRUGS (14)
  1. ATENOLOL [Concomitant]
     Indication: CARDIOVASCULAR DISORDER
     Dosage: 25 MG, 2X/DAY
  2. PROPOFOL [Concomitant]
     Indication: RESPIRATORY THERAPY
     Dosage: 100 ML, UNK
  3. VFEND [Suspect]
     Indication: PANCYTOPENIA
     Dosage: 600 MG, DAILY
     Route: 042
     Dates: start: 20111017, end: 20111019
  4. SODIUM BICARBONATE [Concomitant]
     Indication: ACIDOSIS
     Dosage: 100/1000 MG/ML, DAILY
  5. SODIUM CHLORIDE [Concomitant]
     Dosage: UNK
     Route: 042
  6. ACETYLCYSTEINE [Concomitant]
     Indication: PROPHYLAXIS
     Dosage: 600 MG, 2X/DAY
  7. INSULIN [Concomitant]
     Indication: DIABETES MELLITUS
     Dosage: UNK
  8. CEFEPIME [Concomitant]
     Indication: PANCYTOPENIA
     Dosage: 1 G, DAILY
     Route: 042
  9. CIPROFLOXACIN HYDROCHLORIDE [Concomitant]
     Indication: PANCYTOPENIA
     Dosage: 400 MG, DAILY
     Route: 042
  10. DARIFENACIN [Concomitant]
     Indication: HYPERTONIC BLADDER
     Dosage: 15 MG, DAILY
  11. NEUPOGEN [Concomitant]
     Indication: WHITE BLOOD CELL COUNT DECREASED
     Dosage: 480 UG, WEEKLY
  12. TYLENOL-500 [Concomitant]
     Indication: PROPHYLAXIS
     Dosage: 650 MG, DAILY
  13. IBUPROFEN [Concomitant]
     Indication: PAIN
     Dosage: 600 MG, 3X/DAY
  14. ALBUTEROL [Concomitant]
     Indication: RESPIRATORY THERAPY
     Dosage: 6 PUFFS EVERY 4 HOURS

REACTIONS (11)
  - PLATELET COUNT ABNORMAL [None]
  - GASTROINTESTINAL HAEMORRHAGE [None]
  - BLOOD CREATININE INCREASED [None]
  - RED CELL DISTRIBUTION WIDTH ABNORMAL [None]
  - CREATININE RENAL CLEARANCE DECREASED [None]
  - INFECTION [None]
  - BLOOD UREA INCREASED [None]
  - BLOOD GLUCOSE INCREASED [None]
  - BLOOD PRESSURE DECREASED [None]
  - HYPOCHROMASIA [None]
  - HAEMOGLOBIN ABNORMAL [None]
